FAERS Safety Report 15499972 (Version 1)
Quarter: 2018Q4

REPORT INFORMATION
  Report Type: Spontaneous
  Country: US (occurrence: US)
  Receive Date: 20181008
  Receipt Date: 20181008
  Transmission Date: 20190205
  Serious: Yes (Disabling)
  Sender: FDA-Public Use
  Company Number: None

PATIENT
  Age: 70 Year
  Sex: Female
  Weight: 60.75 kg

DRUGS (7)
  1. LEVOTHYROXINE. [Concomitant]
     Active Substance: LEVOTHYROXINE
  2. VITAMIN D [Concomitant]
     Active Substance: CHOLECALCIFEROL
  3. ESTRACE [Suspect]
     Active Substance: ESTRADIOL
     Indication: VULVOVAGINAL DRYNESS
     Dosage: ?          OTHER FREQUENCY:1-2 TIMES/WEEK;?
     Route: 061
  4. CAREVDILOL [Concomitant]
  5. FISH OIL [Concomitant]
     Active Substance: FISH OIL
  6. POTASSIUM [Concomitant]
     Active Substance: POTASSIUM
  7. ASPIRIN 81 MG [Concomitant]
     Active Substance: ASPIRIN

REACTIONS (5)
  - Abdominal pain upper [None]
  - Gastric pH decreased [None]
  - Product substitution [None]
  - Abdominal distension [None]
  - Flatulence [None]

NARRATIVE: CASE EVENT DATE: 20180731
